FAERS Safety Report 6620264-3 (Version None)
Quarter: 2010Q1

REPORT INFORMATION
  Report Type: 
  Country: None (occurrence: None)
  Receive Date: 20100308
  Receipt Date: 20100308
  Transmission Date: 20100710
  Serious: Yes (Death)
  Sender: FDA-Public Use
  Company Number: None

PATIENT
  Age: 66 Year
  Sex: Male

DRUGS (6)
  1. REVLIMID [Suspect]
     Indication: MULTIPLE MYELOMA
     Dosage: 20 MG DAILY ORALLY
     Route: 048
     Dates: start: 20071101, end: 20080401
  2. REVLIMID [Suspect]
     Indication: MULTIPLE MYELOMA
     Dosage: 20 MG DAILY ORALLY
     Route: 048
     Dates: start: 20081001, end: 20090501
  3. PROCRIT [Concomitant]
  4. ATENOLOL [Concomitant]
  5. MORPHINE [Concomitant]
  6. VICODIN [Concomitant]

REACTIONS (1)
  - NO ADVERSE EVENT [None]
